FAERS Safety Report 18605604 (Version 1)
Quarter: 2020Q4

REPORT INFORMATION
  Report Type: Spontaneous
  Country: CH (occurrence: CH)
  Receive Date: 20201211
  Receipt Date: 20201211
  Transmission Date: 20210114
  Serious: Yes (Hospitalization)
  Sender: FDA-Public Use
  Company Number: CH-ASTRAZENECA-2020SF61654

PATIENT
  Age: 35 Year
  Sex: Male
  Weight: 71.7 kg

DRUGS (5)
  1. SEQUASE [Suspect]
     Active Substance: QUETIAPINE FUMARATE
     Route: 048
  2. DOXAZOSINE [Suspect]
     Active Substance: DOXAZOSIN MESYLATE
     Route: 065
  3. TRUVADA [Suspect]
     Active Substance: EMTRICITABINE\TENOFOVIR DISOPROXIL FUMARATE
     Indication: PROPHYLAXIS
     Route: 048
  4. METAMPHETAMINE [Concomitant]
     Active Substance: METHAMPHETAMINE
  5. VENLAFAXINE [Suspect]
     Active Substance: VENLAFAXINE HYDROCHLORIDE
     Dosage: 150.0MG UNKNOWN
     Route: 048

REACTIONS (1)
  - Liver injury [Recovering/Resolving]

NARRATIVE: CASE EVENT DATE: 20200922
